FAERS Safety Report 7488503-7 (Version None)
Quarter: 2011Q2

REPORT INFORMATION
  Report Type: 
  Country: None (occurrence: None)
  Receive Date: 20110518
  Receipt Date: 20110511
  Transmission Date: 20111010
  Serious: Yes (Other)
  Sender: FDA-Public Use
  Company Number: NL-MERCK-1105NLD00002

PATIENT
  Age: 34 Year
  Sex: Female

DRUGS (3)
  1. COZAAR [Suspect]
     Route: 048
     Dates: end: 20110414
  2. COZAAR [Suspect]
     Route: 048
     Dates: start: 20110414, end: 20110420
  3. DESLORATADINE [Concomitant]
     Indication: SEASONAL ALLERGY
     Route: 065

REACTIONS (2)
  - DRUG EXPOSURE DURING PREGNANCY [None]
  - ABORTION INDUCED [None]
